FAERS Safety Report 12159276 (Version 3)
Quarter: 2016Q4

REPORT INFORMATION
  Report Type: Spontaneous
  Country: None (occurrence: TR)
  Receive Date: 20160308
  Receipt Date: 20161122
  Transmission Date: 20170207
  Serious: Yes (Hospitalization)
  Sender: FDA-Public Use
  Company Number: TU-MERCK KGAA-7323752

PATIENT

DRUGS (1)
  1. NOVOTHYROX [Suspect]
     Active Substance: LEVOTHYROXINE SODIUM

REACTIONS (14)
  - Dyspepsia [None]
  - Impaired quality of life [None]
  - Abdominal distension [None]
  - Dehydration [None]
  - Nasal dryness [None]
  - Hypohidrosis [None]
  - Dry skin [None]
  - Muscle strain [None]
  - Hypokinesia [None]
  - Gastrointestinal disorder [None]
  - Wrong technique in product usage process [None]
  - Hernia [None]
  - Weight increased [None]
  - Dry mouth [None]
